FAERS Safety Report 7312769-7 (Version None)
Quarter: 2011Q1

REPORT INFORMATION
  Report Type: 
  Country: None (occurrence: None)
  Receive Date: 20110224
  Receipt Date: 20110214
  Transmission Date: 20110831
  Serious: Yes (Other)
  Sender: FDA-Public Use
  Company Number: US-WATSON-2011-01875

PATIENT
  Age: 24 Year
  Sex: Female
  Weight: 95.238 kg

DRUGS (3)
  1. LEVONORGESTREL [Suspect]
     Indication: POST COITAL CONTRACEPTION
     Dosage: 1ST TABLET WITHIN 72 HRS OF INTERCOURSE AND 2ND TABLET 10 HRS LATER
     Route: 048
     Dates: start: 20110213, end: 20110214
  2. PENICILLIN [Suspect]
     Indication: PRODUCT USED FOR UNKNOWN INDICATION
     Dosage: UNK
     Route: 065
  3. LEVONORGESTREL [Suspect]
     Dosage: 1ST TABLET WITHIN 72 HRS OF INTERCOURSE AND 2ND TABLET 12 HRS LATER
     Route: 048
     Dates: start: 20100203, end: 20100203

REACTIONS (3)
  - PREMATURE BABY [None]
  - DRUG INEFFECTIVE [None]
  - INAPPROPRIATE SCHEDULE OF DRUG ADMINISTRATION [None]
